FAERS Safety Report 20611963 (Version 1)
Quarter: 2022Q1

REPORT INFORMATION
  Report Type: Spontaneous
  Country: US (occurrence: None)
  Receive Date: 20220318
  Receipt Date: 20220318
  Transmission Date: 20220423
  Serious: Yes (Death)
  Sender: FDA-Public Use
  Company Number: None

PATIENT
  Age: 68 Year
  Sex: Female

DRUGS (18)
  1. AMBRISENTAN [Suspect]
     Active Substance: AMBRISENTAN
     Indication: Pulmonary arterial hypertension
     Dosage: TAKE 1 TABLET (10 MG TOTAL) BY MOUTH DAILY.
     Route: 048
     Dates: start: 20190919, end: 20220317
  2. APIDRA SOLOSTAR [Concomitant]
     Active Substance: INSULIN GLULISINE
  3. BAQSIMI TWO POW [Concomitant]
  4. BASAGLAR INJ [Concomitant]
  5. BUMETANIDE TAB [Concomitant]
  6. CELLCEPT [Concomitant]
     Active Substance: MYCOPHENOLATE MOFETIL
  7. FLONASE ALGY SPR [Concomitant]
  8. IRON TAB [Concomitant]
  9. LETAIRIS TAB [Concomitant]
  10. MAG OXIDE TAB [Concomitant]
  11. MULTI-VITAMIN TAB [Concomitant]
  12. OSTEO BI-FLX TAB 5-LOXIN [Concomitant]
  13. PANTOPRAZOLE TAB [Concomitant]
  14. SPIRONOLACT TAB [Concomitant]
  15. TRAMADOL HCL TAB [Concomitant]
  16. VITAMIN A CAP [Concomitant]
  17. VITAMIN C TAB [Concomitant]
  18. VITAMIN E [Concomitant]
     Active Substance: .ALPHA.-TOCOPHEROL

REACTIONS (1)
  - Death [None]

NARRATIVE: CASE EVENT DATE: 20220317
